FAERS Safety Report 17190903 (Version 1)
Quarter: 2019Q4

REPORT INFORMATION
  Report Type: Report from Study
  Country: US (occurrence: US)
  Receive Date: 20191223
  Receipt Date: 20191223
  Transmission Date: 20200122
  Serious: Yes (Death)
  Sender: FDA-Public Use
  Company Number: US-APOPHARMA INC-2019AP026531

PATIENT
  Sex: Male
  Weight: 98 kg

DRUGS (5)
  1. FERRIPROX [Suspect]
     Active Substance: DEFERIPRONE
     Indication: HAEMOCHROMATOSIS
     Dosage: 20 MG/KG, TID
     Route: 048
     Dates: start: 2019, end: 2019
  2. FERRIPROX [Suspect]
     Active Substance: DEFERIPRONE
     Dosage: 20 MG/KG, TID
     Route: 048
     Dates: start: 20191008, end: 201911
  3. TAMSULOSIN [Concomitant]
     Active Substance: TAMSULOSIN
     Indication: PRODUCT USED FOR UNKNOWN INDICATION
     Route: 065
  4. JAKAFI [Concomitant]
     Active Substance: RUXOLITINIB
     Indication: PRODUCT USED FOR UNKNOWN INDICATION
     Route: 065
  5. FERRIPROX [Suspect]
     Active Substance: DEFERIPRONE
     Dosage: 20 MG/KG, TID
     Route: 048
     Dates: start: 20190912, end: 20191008

REACTIONS (4)
  - Haemoglobin abnormal [Unknown]
  - Disease progression [Unknown]
  - Organ failure [Fatal]
  - Gait inability [Unknown]

NARRATIVE: CASE EVENT DATE: 2019
